FAERS Safety Report 8170854-4 (Version None)
Quarter: 2012Q1

REPORT INFORMATION
  Report Type: 
  Country: None (occurrence: None)
  Receive Date: 20120228
  Receipt Date: 20120221
  Transmission Date: 20120608
  Serious: Yes (Hospitalization)
  Sender: FDA-Public Use
  Company Number: GB-UCBSA-024305

PATIENT
  Age: 55 Year
  Sex: Male
  Weight: 133 kg

DRUGS (9)
  1. VIMPAT [Suspect]
     Dosage: WEEK 2
  2. KEPPRA [Concomitant]
  3. LAMOTRIGINE [Concomitant]
     Route: 048
  4. TEGRETOL [Concomitant]
     Indication: EPILEPSY
     Dosage: 600/600
     Route: 048
  5. VIMPAT [Suspect]
     Indication: EPILEPSY
     Dosage: WEEK 1
  6. LAMOTRIGINE [Concomitant]
     Indication: EPILEPSY
     Route: 048
  7. VIMPAT [Suspect]
     Dosage: FROM WEEK 4
     Route: 048
     Dates: start: 20101013
  8. VIMPAT [Suspect]
     Dosage: 50/100 MG WEEK 3
  9. TEGRETOL [Concomitant]
     Route: 048

REACTIONS (1)
  - ATRIAL FLUTTER [None]
